FAERS Safety Report 17959187 (Version 2)
Quarter: 2020Q4

REPORT INFORMATION
  Report Type: Spontaneous
  Country: JP (occurrence: JP)
  Receive Date: 20200630
  Receipt Date: 20201105
  Transmission Date: 20210113
  Serious: Yes (Other)
  Sender: FDA-Public Use
  Company Number: JP-TAKEDA-2020TJP012817

PATIENT
  Age: 6 Decade
  Sex: Male

DRUGS (1)
  1. NINLARO [Suspect]
     Active Substance: IXAZOMIB CITRATE
     Indication: PLASMA CELL MYELOMA
     Dosage: 3 MILLIGRAM
     Route: 048
     Dates: start: 20200406

REACTIONS (3)
  - Malaise [Unknown]
  - Plasma cell myeloma [Unknown]
  - Nausea [Unknown]

NARRATIVE: CASE EVENT DATE: 20200622
